FAERS Safety Report 6765787-1 (Version None)
Quarter: 2010Q2

REPORT INFORMATION
  Report Type: 
  Country: None (occurrence: None)
  Receive Date: 20100611
  Receipt Date: 20100602
  Transmission Date: 20101027
  Serious: Yes (Death, Hospitalization, Disabling)
  Sender: FDA-Public Use
  Company Number: US-ROCHE-704950

PATIENT
  Sex: Female
  Weight: 61.4 kg

DRUGS (16)
  1. TOCILIZUMAB [Suspect]
     Indication: RHEUMATOID ARTHRITIS
     Dosage: DATE OF LAST DOSE PRIOR TO SAE: 07 JANUARY 2010
     Route: 042
     Dates: start: 20091209, end: 20100107
  2. SYNTHROID [Concomitant]
     Dates: start: 20050101
  3. ASPIRIN [Concomitant]
     Dates: start: 20030101
  4. PROPOXYPHENE HCL AND ACETAMINOPHEN [Concomitant]
     Dosage: TOTAL DAILY DOSE: 100/650 MG
     Dates: start: 20060829
  5. METOPROLOL TARTRATE [Concomitant]
     Dates: start: 20091006
  6. METOPROLOL TARTRATE [Concomitant]
  7. PRAVASTATIN [Concomitant]
     Dates: start: 20091006
  8. CLONAZEPAM [Concomitant]
     Dates: start: 20070517
  9. FLUOXETINE [Concomitant]
     Dates: start: 20080717
  10. LISINOPRIL [Concomitant]
     Dates: start: 20091006
  11. AMLODIPINE [Concomitant]
     Dates: start: 20091006
  12. NITROFURANTOIN [Concomitant]
     Dates: start: 20100301
  13. PREDNISONE [Concomitant]
  14. MUCINEX [Concomitant]
  15. VIT D [Concomitant]
     Dates: start: 20080121
  16. CALCIUM CARBONATE [Concomitant]
     Dosage: DRUG REPORTED AS CALCIUM AND VITAMIN D
     Dates: start: 20050630

REACTIONS (1)
  - CEREBROVASCULAR ACCIDENT [None]
